FAERS Safety Report 14836774 (Version 2)
Quarter: 2018Q2

REPORT INFORMATION
  Report Type: Spontaneous
  Country: DE (occurrence: DE)
  Receive Date: 20180502
  Receipt Date: 20180625
  Transmission Date: 20180711
  Serious: Yes (Life-Threatening)
  Sender: FDA-Public Use
  Company Number: PHHY2018DE074793

PATIENT
  Age: 30 Year
  Sex: Male
  Weight: 73 kg

DRUGS (1)
  1. GILENYA [Suspect]
     Active Substance: FINGOLIMOD HYDROCHLORIDE
     Indication: RELAPSING MULTIPLE SCLEROSIS
     Dosage: 0.5 MG, QD
     Route: 048
     Dates: start: 20170414, end: 20180404

REACTIONS (8)
  - Immune thrombocytopenic purpura [Recovering/Resolving]
  - Gingival bleeding [Unknown]
  - Platelet count decreased [Recovering/Resolving]
  - Petechiae [Unknown]
  - Scleral haemorrhage [Unknown]
  - Haematuria [Unknown]
  - Lymphopenia [Unknown]
  - Epistaxis [Unknown]

NARRATIVE: CASE EVENT DATE: 20180402
